FAERS Safety Report 9167320 (Version 1)
Quarter: 2013Q1

REPORT INFORMATION
  Report Type: Spontaneous
  Country: GB (occurrence: None)
  Receive Date: 20130307
  Receipt Date: 20130307
  Transmission Date: 20140127
  Serious: Yes (Other)
  Sender: FDA-Public Use
  Company Number: GER/UKI/13/0028320

PATIENT
  Age: 24 Year
  Sex: Female

DRUGS (4)
  1. FLUOXETINE (FLUOXETINE) [Suspect]
     Dates: start: 200610, end: 200710
  2. INTERFERON ALFA-2B [Suspect]
  3. RIBAVIRIN (RIBAVIRIN) [Suspect]
  4. HEROIN (DIAMORPHINE) [Concomitant]

REACTIONS (2)
  - Exposure via body fluid [None]
  - Abortion spontaneous [None]
